FAERS Safety Report 15158256 (Version 2)
Quarter: 2019Q3

REPORT INFORMATION
  Report Type: Report from Study
  Country: CA (occurrence: CA)
  Receive Date: 20180718
  Receipt Date: 20190715
  Transmission Date: 20191004
  Serious: No
  Sender: FDA-Public Use
  Company Number: CA-ROCHE-2123260

PATIENT
  Age: 37 Year
  Sex: Female

DRUGS (2)
  1. BLEXTEN [Concomitant]
     Active Substance: BILASTINE
     Route: 065
  2. OCREVUS [Suspect]
     Active Substance: OCRELIZUMAB
     Indication: RELAPSING-REMITTING MULTIPLE SCLEROSIS
     Dosage: 300MG DAY 1, 15 THEN 600MG Q 6MONTHS,?NEXT DATE OF TREATMENT: 16/AUG/2016
     Route: 042
     Dates: start: 20160801

REACTIONS (12)
  - Eczema [Not Recovered/Not Resolved]
  - Food allergy [Not Recovered/Not Resolved]
  - Ovarian disorder [Recovered/Resolved]
  - Pruritus [Recovered/Resolved]
  - Rash [Recovered/Resolved]
  - Generalised erythema [Recovered/Resolved]
  - Nasopharyngitis [Recovered/Resolved]
  - Infusion related reaction [Recovered/Resolved]
  - Drug intolerance [Not Recovered/Not Resolved]
  - Headache [Recovered/Resolved]
  - Alopecia [Not Recovered/Not Resolved]
  - Diarrhoea [Recovered/Resolved]

NARRATIVE: CASE EVENT DATE: 201608
